FAERS Safety Report 14572171 (Version 1)
Quarter: 2018Q1

REPORT INFORMATION
  Report Type: Spontaneous
  Country: US (occurrence: US)
  Receive Date: 20180220
  Receipt Date: 20180220
  Transmission Date: 20180509
  Serious: Yes (Hospitalization)
  Sender: FDA-Public Use
  Company Number: None

PATIENT
  Sex: Male

DRUGS (8)
  1. POTASSIUM, PROAIR [Concomitant]
  2. ZOLPIDEM [Concomitant]
     Active Substance: ZOLPIDEM\ZOLPIDEM TARTRATE
  3. REPATHA [Suspect]
     Active Substance: EVOLOCUMAB
     Indication: TYPE IIA HYPERLIPIDAEMIA
     Dosage: ?          OTHER FREQUENCY:Q 2 WEEKS;?
     Route: 058
     Dates: start: 20171003
  4. LASIX, LISINOPRIL [Concomitant]
  5. CLONAZEPAM, CLOPIDOGREL [Concomitant]
  6. SPIRIVA, VALTREX [Concomitant]
  7. AMIODARONE, BREO ELLIPTA [Concomitant]
  8. METOPROL, OMEPRAZOLE [Concomitant]

REACTIONS (1)
  - Cardiac operation [None]
